FAERS Safety Report 19879176 (Version 2)
Quarter: 2021Q4

REPORT INFORMATION
  Report Type: Report from Study
  Country: ES (occurrence: ES)
  Receive Date: 20210924
  Receipt Date: 20211112
  Transmission Date: 20220303
  Serious: No
  Sender: FDA-Public Use
  Company Number: ES-GW PHARMA-202109ESGW04548

PATIENT

DRUGS (7)
  1. EPIDIOLEX [Suspect]
     Active Substance: CANNABIDIOL
     Indication: Lennox-Gastaut syndrome
     Dosage: 21.6 MG/KG/DAY, 648 MILLIGRAM, QD
     Route: 048
     Dates: start: 20200224, end: 20201123
  2. EPIDIOLEX [Suspect]
     Active Substance: CANNABIDIOL
     Dosage: 22.6 MG/KG/DAY, 680 MILLIGRAM, QD
     Route: 048
     Dates: start: 20201124, end: 20210419
  3. VALPROIC ACID [Concomitant]
     Active Substance: VALPROIC ACID
     Indication: Epilepsy
     Dosage: 800 MILLIGRAM, QD
     Route: 048
     Dates: start: 20160218
  4. LEVETIRACETAM [Concomitant]
     Active Substance: LEVETIRACETAM
     Indication: Epilepsy
     Dosage: 1400 MILLIGRAM, QD
     Route: 048
     Dates: start: 20180118
  5. VIGABATRIN [Concomitant]
     Active Substance: VIGABATRIN
     Indication: Epilepsy
     Dosage: 1000 MILLIGRAM, QD
     Route: 048
     Dates: start: 20180503, end: 20201201
  6. VIGABATRIN [Concomitant]
     Active Substance: VIGABATRIN
     Dosage: 950 MILLIGRAM, QD
     Route: 048
     Dates: start: 20201202
  7. BRIVARACETAM [Concomitant]
     Active Substance: BRIVARACETAM
     Indication: Epilepsy
     Dosage: 1600 MILLIGRAM, QD
     Route: 048
     Dates: start: 20171109

REACTIONS (1)
  - Fibroma [Recovered/Resolved]

NARRATIVE: CASE EVENT DATE: 20201124
